FAERS Safety Report 18273412 (Version 1)
Quarter: 2020Q3

REPORT INFORMATION
  Report Type: Spontaneous
  Country: US (occurrence: US)
  Receive Date: 20200916
  Receipt Date: 20200916
  Transmission Date: 20201103
  Serious: Yes (Other)
  Sender: FDA-Public Use
  Company Number: None

PATIENT
  Age: 61 Year
  Sex: Female
  Weight: 76.66 kg

DRUGS (3)
  1. NATURE?THROID [Suspect]
     Active Substance: THYROID, PORCINE
     Indication: HYPOTHYROIDISM
     Dosage: ?          OTHER STRENGTH:1.5 GRAIN;QUANTITY:2 1/2;?
     Route: 048
     Dates: start: 201908
  2. MULTI VITAMIN [Concomitant]
     Active Substance: VITAMINS
  3. OMEGAS [Concomitant]

REACTIONS (2)
  - Drug ineffective [None]
  - Recalled product administered [None]

NARRATIVE: CASE EVENT DATE: 20200302
